FAERS Safety Report 7518335-2 (Version None)
Quarter: 2011Q2

REPORT INFORMATION
  Report Type: 
  Country: None (occurrence: None)
  Receive Date: 20110602
  Receipt Date: 20090619
  Transmission Date: 20111010
  Serious: Yes (Death, Other)
  Sender: FDA-Public Use
  Company Number: US-BAYER-200924103NA

PATIENT
  Age: 53 Year
  Sex: Male
  Weight: 84.671 kg

DRUGS (11)
  1. TRASYLOL [Suspect]
     Indication: CORONARY ARTERY BYPASS
     Dosage: UNK
     Route: 042
     Dates: start: 20070629, end: 20070629
  2. TRASYLOL [Suspect]
     Indication: MITRAL VALVE REPAIR
  3. NEURONTIN [Concomitant]
     Dosage: 600 MG, TID
  4. MORPHINE [Concomitant]
     Dosage: UNK
     Route: 042
     Dates: start: 20070629, end: 20070629
  5. CALCIUM CHLORIDE [Concomitant]
     Dosage: UNK
     Route: 042
     Dates: start: 20070629, end: 20070629
  6. LISINOPRIL [Concomitant]
     Dosage: 40 MG, UNK
     Route: 048
     Dates: start: 20000101
  7. MILRINONE [Concomitant]
     Dosage: 4.5 MG, UNK
     Route: 042
     Dates: start: 20070629
  8. IBUPROFEN [Concomitant]
     Dosage: 400 MG, TID
  9. HEPARIN [Concomitant]
     Dosage: 570,000 UNITS
     Route: 042
     Dates: start: 20070629, end: 20070629
  10. FUROSEMIDE [Concomitant]
     Dosage: 20 MG, QD
     Route: 048
     Dates: start: 20000101
  11. AMIODARONE HCL [Concomitant]
     Dosage: 150 MG, UNK
     Route: 042
     Dates: start: 20070629, end: 20070629

REACTIONS (9)
  - RENAL INJURY [None]
  - ANXIETY [None]
  - UNEVALUABLE EVENT [None]
  - EMOTIONAL DISTRESS [None]
  - FEAR [None]
  - PAIN [None]
  - RENAL IMPAIRMENT [None]
  - RENAL FAILURE [None]
  - STRESS [None]
